FAERS Safety Report 4436302-2 (Version None)
Quarter: 2004Q3

REPORT INFORMATION
  Report Type: 
  Country: None (occurrence: None)
  Receive Date: 20040830
  Receipt Date: 20040720
  Transmission Date: 20050211
  Serious: Yes (Life-Threatening, Other)
  Sender: FDA-Public Use
  Company Number: US-BRISTOL-MYERS SQUIBB COMPANY-12646311

PATIENT
  Age: 68 Year
  Sex: Male
  Weight: 97 kg

DRUGS (6)
  1. ERBITUX [Suspect]
     Indication: COLORECTAL CANCER
     Route: 042
     Dates: start: 20040719, end: 20040719
  2. BENADRYL [Concomitant]
     Indication: PREMEDICATION
     Route: 042
     Dates: start: 20040719, end: 20040719
  3. DECADRON [Concomitant]
     Indication: PREMEDICATION
     Route: 042
     Dates: start: 20040719, end: 20040719
  4. ZANTAC [Concomitant]
     Indication: PREMEDICATION
     Route: 042
     Dates: start: 20040719, end: 20040719
  5. ZOFRAN [Concomitant]
     Indication: PREMEDICATION
     Route: 042
     Dates: start: 20040719, end: 20040719
  6. CAMPTOSAR [Concomitant]
     Dates: start: 20040501

REACTIONS (3)
  - ANAPHYLACTIC REACTION [None]
  - MEDICATION ERROR [None]
  - OVERDOSE [None]
